FAERS Safety Report 23618195 (Version 1)
Quarter: 2024Q1

REPORT INFORMATION
  Report Type: Spontaneous
  Country: FR (occurrence: FR)
  Receive Date: 20240311
  Receipt Date: 20240311
  Transmission Date: 20240410
  Serious: Yes (Death)
  Sender: FDA-Public Use
  Company Number: FR-PFIZER INC-0015846901PHAMED

PATIENT
  Age: 80 Year
  Sex: Female

DRUGS (3)
  1. FRAGMIN [Suspect]
     Active Substance: DALTEPARIN SODIUM
     Indication: Phlebitis
     Dosage: 16000 IU
     Route: 058
     Dates: start: 19990306, end: 19990315
  2. FRAGMIN [Suspect]
     Active Substance: DALTEPARIN SODIUM
     Indication: Thrombophlebitis
  3. FLUINDIONE [Suspect]
     Active Substance: FLUINDIONE
     Indication: Ill-defined disorder
     Dosage: 20 MG
     Route: 048
     Dates: start: 19990309, end: 19990315

REACTIONS (1)
  - Haematoma [Fatal]

NARRATIVE: CASE EVENT DATE: 19990315
